FAERS Safety Report 24110192 (Version 1)
Quarter: 2024Q3

REPORT INFORMATION
  Report Type: Spontaneous
  Country: US (occurrence: None)
  Receive Date: 20240718
  Receipt Date: 20240718
  Transmission Date: 20241017
  Serious: Yes (Hospitalization)
  Sender: Public
  Company Number: None

PATIENT
  Age: 54 Year
  Sex: Female
  Weight: 54.9 kg

DRUGS (2)
  1. CISPLATIN [Suspect]
     Active Substance: CISPLATIN
     Dates: end: 20240710
  2. GEMCITABINE HYDROCHLORIDE [Suspect]
     Active Substance: GEMCITABINE HYDROCHLORIDE
     Dates: end: 20240710

REACTIONS (7)
  - Asthenia [None]
  - Chills [None]
  - Pain [None]
  - Body temperature increased [None]
  - Tachycardia [None]
  - White blood cell count increased [None]
  - Urinary tract infection [None]

NARRATIVE: CASE EVENT DATE: 20240710
